FAERS Safety Report 4635165-X (Version None)
Quarter: 2005Q2

REPORT INFORMATION
  Report Type: 
  Country: None (occurrence: None)
  Receive Date: 20050414
  Receipt Date: 20050304
  Transmission Date: 20051028
  Serious: Yes (Congenital Anomaly)
  Sender: FDA-Public Use
  Company Number: SE-GLAXOSMITHKLINE-B0374645A

PATIENT

DRUGS (3)
  1. LAMICTAL [Suspect]
     Dosage: 200MG PER DAY
  2. FOLACIN [Concomitant]
     Dosage: 5MG PER DAY
  3. ESUCOS [Concomitant]
     Dosage: 20MG PER DAY
     Dates: start: 20040425, end: 20040605

REACTIONS (2)
  - CLEFT PALATE [None]
  - DRUG EXPOSURE DURING PREGNANCY [None]
